FAERS Safety Report 19442219 (Version 1)
Quarter: 2021Q2

REPORT INFORMATION
  Report Type: Report from Study
  Country: CA (occurrence: CA)
  Receive Date: 20210621
  Receipt Date: 20210621
  Transmission Date: 20210717
  Serious: Yes (Hospitalization)
  Sender: FDA-Public Use
  Company Number: CA-KARYOPHARM THERAPEUTICS, INC.-2016KPT000690

PATIENT
  Age: 71 Year
  Sex: Male
  Weight: 83 kg

DRUGS (8)
  1. SELINEXOR [Suspect]
     Active Substance: SELINEXOR
     Indication: PLASMA CELL MYELOMA
     Dosage: 80 MG, WEEKLY
     Route: 048
     Dates: start: 20161102, end: 20161214
  2. MVI                                /07504101/ [Concomitant]
     Indication: SUPPLEMENTATION THERAPY
     Dosage: 1 TABLET ONCE DAILY
     Route: 048
     Dates: start: 2006
  3. LENALIDOMIDE [Suspect]
     Active Substance: LENALIDOMIDE
     Dosage: 25 MG, QD
     Route: 048
     Dates: end: 20170127
  4. DEXAMETHASONE. [Suspect]
     Active Substance: DEXAMETHASONE
     Indication: PLASMA CELL MYELOMA
     Dosage: 40 MG, WEEKLY
     Route: 048
     Dates: start: 20161102, end: 20161214
  5. WARFARIN [Concomitant]
     Active Substance: WARFARIN
     Indication: DEEP VEIN THROMBOSIS
     Dosage: 4 MG, QD
     Route: 048
     Dates: start: 200812, end: 200812
  6. LENALIDOMIDE [Suspect]
     Active Substance: LENALIDOMIDE
     Indication: PLASMA CELL MYELOMA
     Dosage: 25 MG, QD
     Route: 048
     Dates: start: 20161103, end: 20161214
  7. LYRICA [Concomitant]
     Active Substance: PREGABALIN
     Indication: NEUROPATHY PERIPHERAL
     Dosage: 300 MG, BID
     Route: 048
     Dates: start: 2011
  8. DEXAMETHASONE. [Suspect]
     Active Substance: DEXAMETHASONE
     Dosage: 40 MG, WEEKLY
     Route: 048
     Dates: end: 20181123

REACTIONS (1)
  - Bronchopulmonary aspergillosis [Recovered/Resolved]

NARRATIVE: CASE EVENT DATE: 20161214
